FAERS Safety Report 7392404-2 (Version None)
Quarter: 2011Q2

REPORT INFORMATION
  Report Type: 
  Country: None (occurrence: None)
  Receive Date: 20110404
  Receipt Date: 20100325
  Transmission Date: 20111010
  Serious: No
  Sender: FDA-Public Use
  Company Number: CA-BAYER-201019081NA

PATIENT
  Sex: Female

DRUGS (1)
  1. MIRENA [Suspect]
     Indication: MENORRHAGIA
     Dosage: 20 MCG/24HR, CONT
     Route: 015
     Dates: start: 20100212

REACTIONS (6)
  - DYSPAREUNIA [None]
  - DEVICE EXPULSION [None]
  - DEVICE BREAKAGE [None]
  - POST PROCEDURAL HAEMORRHAGE [None]
  - ABDOMINAL PAIN [None]
  - PROCEDURAL PAIN [None]
